FAERS Safety Report 14268650 (Version 1)
Quarter: 2017Q4

REPORT INFORMATION
  Report Type: Spontaneous
  Country: CZ (occurrence: CZ)
  Receive Date: 20171211
  Receipt Date: 20171211
  Transmission Date: 20180321
  Serious: Yes (Other)
  Sender: FDA-Public Use
  Company Number: CZ-JNJFOC-20171205223

PATIENT
  Age: 32 Year
  Sex: Male

DRUGS (5)
  1. NOLPAZA [Concomitant]
     Active Substance: PANTOPRAZOLE SODIUM
     Route: 065
  2. ZALDIAR [Suspect]
     Active Substance: ACETAMINOPHEN\TRAMADOL HYDROCHLORIDE
     Indication: PRODUCT USED FOR UNKNOWN INDICATION
     Route: 065
  3. PENTASA [Concomitant]
     Active Substance: MESALAMINE
     Route: 065
     Dates: start: 20170116
  4. REMSIMA [Suspect]
     Active Substance: INFLIXIMAB
     Indication: PSORIATIC ARTHROPATHY
     Route: 041
     Dates: start: 20171123, end: 20171123
  5. BETALOC [Concomitant]
     Active Substance: METOPROLOL TARTRATE
     Route: 065

REACTIONS (4)
  - Hot flush [Recovered/Resolved]
  - Palpitations [Recovered/Resolved]
  - Feeling hot [Recovered/Resolved]
  - Localised oedema [Recovered/Resolved]

NARRATIVE: CASE EVENT DATE: 20171123
